FAERS Safety Report 9473503 (Version 2)
Quarter: 2013Q3

REPORT INFORMATION
  Report Type: Spontaneous
  Country: US (occurrence: US)
  Receive Date: 20130823
  Receipt Date: 20130823
  Transmission Date: 20140515
  Serious: No
  Sender: FDA-Public Use
  Company Number: US-GALDERMA-US13000823

PATIENT
  Age: 83 Year
  Sex: Female
  Weight: 91 kg

DRUGS (8)
  1. METROGEL (METRONIDAZOLE) GEL, 1% [Suspect]
     Indication: ROSACEA
     Dosage: 1%
     Route: 061
     Dates: start: 201302, end: 201302
  2. DOVE BAR SOAP [Concomitant]
     Indication: THERAPEUTIC SKIN CARE TOPICAL
     Route: 061
  3. HYDROCHLOROTHIAZIDE [Concomitant]
     Route: 048
  4. SERTRALINE HYDROCHLORIDE [Concomitant]
     Indication: DEPRESSION
     Route: 048
  5. COZAAR [Concomitant]
     Route: 048
  6. THYROID MEDICATION [Concomitant]
     Route: 048
  7. CHOLESTEROL MEDICATION [Concomitant]
     Indication: HYPERCHOLESTEROLAEMIA
     Route: 048
  8. ADVAIR [Concomitant]
     Indication: CHRONIC OBSTRUCTIVE PULMONARY DISEASE

REACTIONS (2)
  - Skin exfoliation [Recovered/Resolved]
  - Dry skin [Recovered/Resolved]
